FAERS Safety Report 20626516 (Version 2)
Quarter: 2022Q2

REPORT INFORMATION
  Report Type: Spontaneous
  Country: GB (occurrence: GB)
  Receive Date: 20220323
  Receipt Date: 20220414
  Transmission Date: 20220721
  Serious: Yes (Other)
  Sender: FDA-Public Use
  Company Number: GB-MLMSERVICE-20220309-3409661-1

PATIENT

DRUGS (2)
  1. PREDNISOLONE [Suspect]
     Active Substance: PREDNISOLONE
     Indication: Giant cell arteritis
     Dosage: UNK
  2. PREDNISOLONE [Suspect]
     Active Substance: PREDNISOLONE
     Dosage: UNK (DOSE REDUCTION)

REACTIONS (5)
  - Substance-induced psychotic disorder [Recovering/Resolving]
  - Hallucination, visual [Recovering/Resolving]
  - Hallucination, olfactory [Recovering/Resolving]
  - Hallucination, auditory [Recovering/Resolving]
  - Product use in unapproved indication [Unknown]
